FAERS Safety Report 7378775-1 (Version None)
Quarter: 2011Q1

REPORT INFORMATION
  Report Type: 
  Country: None (occurrence: None)
  Receive Date: 20110328
  Receipt Date: 20110322
  Transmission Date: 20110831
  Serious: Yes (Other)
  Sender: FDA-Public Use
  Company Number: GB-BRISTOL-MYERS SQUIBB COMPANY-15628779

PATIENT
  Age: 65 Year
  Sex: Female
  Weight: 63 kg

DRUGS (12)
  1. CLOZARIL [Suspect]
     Indication: PSYCHOTIC DISORDER
     Route: 048
     Dates: start: 20101108, end: 20110120
  2. FERROUS FUMARATE [Concomitant]
     Indication: ANAEMIA
     Route: 048
  3. ZUCLOPENTHIXOL DECANOATE [Concomitant]
     Indication: PSYCHOTIC DISORDER
     Route: 030
  4. ARIPIPRAZOLE [Suspect]
     Indication: PSYCHOTIC DISORDER
     Route: 048
     Dates: start: 20101202, end: 20110131
  5. TRIHEXYPHENIDYL [Concomitant]
     Indication: CONSTIPATION
     Route: 048
  6. LACTULOSE [Concomitant]
     Indication: CONSTIPATION
  7. ZOPICLONE [Concomitant]
  8. HALOPERIDOL [Concomitant]
     Indication: PSYCHOTIC DISORDER
     Route: 048
  9. LANSOPRAZOLE [Concomitant]
     Indication: OESOPHAGITIS
     Route: 048
  10. METFORMIN [Concomitant]
     Indication: DIABETES MELLITUS
  11. LORAZEPAM [Concomitant]
  12. SENNA [Concomitant]
     Indication: CONSTIPATION
     Route: 048

REACTIONS (1)
  - HAEMOGLOBIN DECREASED [None]
